FAERS Safety Report 24771135 (Version 1)
Quarter: 2024Q4

REPORT INFORMATION
  Report Type: Spontaneous
  Country: US (occurrence: None)
  Receive Date: 20241224
  Receipt Date: 20241224
  Transmission Date: 20250115
  Serious: No
  Sender: Public
  Company Number: None

PATIENT
  Age: 25 Year
  Sex: Female
  Weight: 98.55 kg

DRUGS (4)
  1. MICONAZOLE 1 [Suspect]
     Active Substance: MICONAZOLE NITRATE
     Indication: Fungal infection
     Dates: start: 20241224, end: 20241224
  2. MIRENA [Concomitant]
     Active Substance: LEVONORGESTREL
  3. ADAPALENE [Concomitant]
     Active Substance: ADAPALENE
  4. CLINDAMYCIN [Concomitant]
     Active Substance: CLINDAMYCIN

REACTIONS (2)
  - Vulvovaginal burning sensation [None]
  - Vulvovaginal pruritus [None]

NARRATIVE: CASE EVENT DATE: 20241224
